FAERS Safety Report 5621919-X (Version None)
Quarter: 2008Q1

REPORT INFORMATION
  Report Type: 
  Country: None (occurrence: None)
  Receive Date: 20080114
  Receipt Date: 20070622
  Transmission Date: 20080703
  Serious: Yes (Other)
  Sender: FDA-Public Use
  Company Number: A03200704195

PATIENT

DRUGS (3)
  1. PLAVIX [Suspect]
     Indication: ISCHAEMIC STROKE
     Dosage: ORAL
     Route: 048
  2. ACETYLSALICYCLIC ACID - TABLET [Suspect]
     Indication: ISCHAEMIC STROKE
     Dosage: ORAL
     Route: 048
  3. ALTEPLASE -SOLUTION [Suspect]
     Indication: ISCHAEMIC STROKE
     Dosage: INTRAVENOUS NOS
     Route: 042

REACTIONS (1)
  - HAEMORRHAGIC TRANSFORMATION STROKE [None]
